FAERS Safety Report 21510563 (Version 2)
Quarter: 2022Q4

REPORT INFORMATION
  Report Type: Spontaneous
  Country: US (occurrence: US)
  Receive Date: 20221026
  Receipt Date: 20221108
  Transmission Date: 20230113
  Serious: Yes (Other)
  Sender: FDA-Public Use
  Company Number: US-INCYTE CORPORATION-2022IN010184

PATIENT

DRUGS (3)
  1. JAKAFI [Suspect]
     Active Substance: RUXOLITINIB
     Indication: Polycythaemia vera
     Dosage: 10 MILLIGRAM, BID
     Route: 048
     Dates: start: 20220228
  2. JAKAFI [Suspect]
     Active Substance: RUXOLITINIB
     Dosage: 10 MILLIGRAM, BID
     Route: 048
     Dates: start: 20220928
  3. JAKAFI [Suspect]
     Active Substance: RUXOLITINIB
     Dosage: 20 MILLIGRAM IN AM / 10 MILLIGRAM IN PM
     Route: 048
     Dates: start: 202209

REACTIONS (16)
  - Diverticulitis [Unknown]
  - Palpitations [Unknown]
  - Insomnia [Unknown]
  - Abdominal pain upper [Unknown]
  - Colitis [Unknown]
  - Decreased appetite [Unknown]
  - Heart valve incompetence [Unknown]
  - Depression [Unknown]
  - Migraine [Unknown]
  - Fatigue [Unknown]
  - Weight decreased [Unknown]
  - Taste disorder [Unknown]
  - Headache [Unknown]
  - Nausea [Unknown]
  - Dizziness [Unknown]
  - Hypertension [Unknown]
